FAERS Safety Report 9830169 (Version 1)
Quarter: 2014Q1

REPORT INFORMATION
  Report Type: Spontaneous
  Country: US (occurrence: US)
  Receive Date: 20140120
  Receipt Date: 20140120
  Transmission Date: 20141002
  Serious: Yes (Life-Threatening)
  Sender: FDA-Public Use
  Company Number: US-DRREDDYS-USA/USA/14/0037240

PATIENT
  Age: 3 Year
  Sex: Male

DRUGS (1)
  1. AMLODIPINE BESYLATE [Suspect]
     Indication: PRODUCT USED FOR UNKNOWN INDICATION
     Route: 065

REACTIONS (6)
  - Accidental exposure to product by child [Unknown]
  - Bradycardia [Unknown]
  - Pulse abnormal [Unknown]
  - Pallor [Unknown]
  - Hypoperfusion [Unknown]
  - Slow response to stimuli [Unknown]
